FAERS Safety Report 10483329 (Version 3)
Quarter: 2019Q4

REPORT INFORMATION
  Report Type: Spontaneous
  Country: DE (occurrence: DE)
  Receive Date: 20140930
  Receipt Date: 20191003
  Transmission Date: 20200122
  Serious: Yes (Other)
  Sender: FDA-Public Use
  Company Number: DE-AUROBINDO-AUR-APL-2014-10379

PATIENT
  Age: 25 Year
  Sex: Female
  Weight: 65 kg

DRUGS (4)
  1. LEVETIRACETAM. [Suspect]
     Active Substance: LEVETIRACETAM
     Indication: EPILEPSY
     Dosage: 2000 MILLIGRAM, DAILY
     Route: 065
     Dates: start: 20130716, end: 20131114
  2. LEVETIRACETAM. [Suspect]
     Active Substance: LEVETIRACETAM
     Dosage: 3500 MILLIGRAM, DAILY
     Route: 065
  3. MISOPROSTOL. [Concomitant]
     Active Substance: MISOPROSTOL
     Indication: LABOUR INDUCTION
     Dosage: UNK
     Route: 065
     Dates: start: 20140228, end: 20140228
  4. CARBAMAZEPINA [Suspect]
     Active Substance: CARBAMAZEPINE
     Indication: EPILEPSY
     Dosage: UNK
     Route: 065

REACTIONS (4)
  - Stillbirth [Unknown]
  - Exposure during pregnancy [Recovered/Resolved]
  - Exposure via partner [Unknown]
  - Pregnancy [Recovered/Resolved]
